FAERS Safety Report 13239429 (Version 1)
Quarter: 2017Q1

REPORT INFORMATION
  Report Type: Spontaneous
  Country: CH (occurrence: CH)
  Receive Date: 20170216
  Receipt Date: 20170216
  Transmission Date: 20170428
  Serious: Yes (Death)
  Sender: FDA-Public Use
  Company Number: CH-BAYER-2017-023197

PATIENT
  Age: 75 Year
  Sex: Male
  Weight: 80 kg

DRUGS (5)
  1. ISOKET [Concomitant]
     Active Substance: ISOSORBIDE DINITRATE
     Dosage: 1.25 MG, UNK
     Route: 060
  2. CRESTOR [Concomitant]
     Active Substance: ROSUVASTATIN CALCIUM
     Dosage: 10 MG, QD
     Route: 048
  3. ASPIRIN CARDIO 100 MG [Suspect]
     Active Substance: ASPIRIN
     Indication: CEREBROVASCULAR ACCIDENT
     Dosage: 100 MG, QD
     Route: 048
     Dates: start: 201301
  4. AMLODIPINE BESILATE W/ OLMESARTAN MEDOXOMIL [Concomitant]
     Active Substance: AMLODIPINE BESYLATE\OLMESARTAN MEDOXOMIL
     Dosage: 25 MG, UNK
     Route: 048
  5. VITAMIN D3 [Concomitant]
     Active Substance: CHOLECALCIFEROL
     Dosage: 8 GTT, QD

REACTIONS (1)
  - Subarachnoid haemorrhage [Fatal]

NARRATIVE: CASE EVENT DATE: 20161227
